FAERS Safety Report 9402916 (Version 1)
Quarter: 2013Q3

REPORT INFORMATION
  Report Type: Spontaneous
  Country: FR (occurrence: FR)
  Receive Date: 20130716
  Receipt Date: 20130716
  Transmission Date: 20140515
  Serious: Yes (Congenital Anomaly)
  Sender: FDA-Public Use
  Company Number: FR-UCBSA-091678

PATIENT
  Sex: 0

DRUGS (3)
  1. VIMPAT [Suspect]
     Indication: EPILEPSY
     Route: 064
     Dates: start: 2012, end: 20120711
  2. VIMPAT [Suspect]
     Indication: EPILEPSY
     Route: 064
     Dates: start: 201209
  3. DEPAKINE CHRONO [Concomitant]
     Indication: EPILEPSY
     Dosage: STRENGTH: 500, 2 TABLETS + 1/2 DAILY
     Route: 064

REACTIONS (2)
  - Renal aplasia [Not Recovered/Not Resolved]
  - Foetal exposure during pregnancy [Recovered/Resolved]
